FAERS Safety Report 23733047 (Version 1)
Quarter: 2024Q2

REPORT INFORMATION
  Report Type: Spontaneous
  Country: US (occurrence: US)
  Receive Date: 20240411
  Receipt Date: 20240411
  Transmission Date: 20240715
  Serious: No
  Sender: FDA-Public Use
  Company Number: US-PFIZER INC-202300414850

PATIENT
  Age: 9 Year
  Sex: Male

DRUGS (2)
  1. OXBRYTA [Suspect]
     Active Substance: VOXELOTOR
     Dosage: 300MG/3 TABLETS FOR ORAL SUSPENSION ONCE DAILY
     Route: 048
  2. OXBRYTA [Suspect]
     Active Substance: VOXELOTOR
     Dosage: 300MG/3 TABLETS FOR ORAL SUSPENSION ONCE DAILY
     Route: 048

REACTIONS (1)
  - Illness [Unknown]
